FAERS Safety Report 13133468 (Version 1)
Quarter: 2017Q1

REPORT INFORMATION
  Report Type: Spontaneous
  Country: US (occurrence: US)
  Receive Date: 20170119
  Receipt Date: 20170119
  Transmission Date: 20170428
  Serious: Yes (Hospitalization)
  Sender: FDA-Public Use
  Company Number: None

PATIENT
  Age: 26 Year
  Sex: Female
  Weight: 56.41 kg

DRUGS (19)
  1. PALBOCICLIB (PD0332991) [Suspect]
     Active Substance: PALBOCICLIB
     Indication: SQUAMOUS CELL CARCINOMA OF HEAD AND NECK
     Dosage: 125 MG QD DAYS 1-21 PO
     Route: 048
     Dates: start: 20160901, end: 20161221
  2. ALEVE [Concomitant]
     Active Substance: NAPROXEN SODIUM
  3. PROCHLORPERAZINE MALEATE. [Concomitant]
     Active Substance: PROCHLORPERAZINE MALEATE
  4. TRIAMCINOLONE ACETONIDE. [Concomitant]
     Active Substance: TRIAMCINOLONE ACETONIDE
  5. DEXAMETHASONE. [Concomitant]
     Active Substance: DEXAMETHASONE
  6. HM FAMOTIDINE [Concomitant]
  7. LIDOCAINE-PRILOCAINE [Concomitant]
     Active Substance: LIDOCAINE\PRILOCAINE
  8. PREDNISONE. [Concomitant]
     Active Substance: PREDNISONE
  9. CETUXIMAB. [Suspect]
     Active Substance: CETUXIMAB
     Indication: SQUAMOUS CELL CARCINOMA OF HEAD AND NECK
     Dosage: 250 MG/M2 WEEKLY IV
     Route: 042
     Dates: start: 20160901, end: 20161220
  10. CYCLOBENZAPRINE HCL [Concomitant]
     Active Substance: CYCLOBENZAPRINE HYDROCHLORIDE
  11. GABAPENTIN. [Concomitant]
     Active Substance: GABAPENTIN
  12. AZITHROMYCIN ANHYDROUS. [Concomitant]
     Active Substance: AZITHROMYCIN ANHYDROUS
  13. CEPHALEXIN. [Concomitant]
     Active Substance: CEPHALEXIN
  14. NAPROXEN. [Concomitant]
     Active Substance: NAPROXEN
  15. OXYCODONE HYDROCHLORIDE. [Concomitant]
     Active Substance: OXYCODONE HYDROCHLORIDE
  16. SENNA [Concomitant]
     Active Substance: SENNA LEAF\SENNOSIDES\SENNOSIDES A AND B
  17. FENTANYL. [Concomitant]
     Active Substance: FENTANYL
  18. PENNSAID [Concomitant]
     Active Substance: DICLOFENAC SODIUM
  19. ALPRAZOLAM. [Concomitant]
     Active Substance: ALPRAZOLAM

REACTIONS (14)
  - Musculoskeletal pain [None]
  - Blood glucose decreased [None]
  - Malignant neoplasm progression [None]
  - Abdominal pain [None]
  - Squamous cell carcinoma of the tongue [None]
  - Back pain [None]
  - Chromaturia [None]
  - Condition aggravated [None]
  - Contusion [None]
  - Heart rate increased [None]
  - Asthenia [None]
  - Haemoglobin decreased [None]
  - Fatigue [None]
  - Hypercalcaemia [None]

NARRATIVE: CASE EVENT DATE: 20170118
